FAERS Safety Report 23276990 (Version 1)
Quarter: 2023Q4

REPORT INFORMATION
  Report Type: Spontaneous
  Country: US (occurrence: US)
  Receive Date: 20231208
  Receipt Date: 20231208
  Transmission Date: 20240110
  Serious: Yes (Hospitalization)
  Sender: FDA-Public Use
  Company Number: US-CYCLE PHARMACEUTICALS LTD-2023-CYC-000110

PATIENT

DRUGS (1)
  1. NITYR [Suspect]
     Active Substance: NITISINONE
     Indication: Tyrosinaemia
     Dosage: 2 MG, BID. SUSPEND ONE 2 MG TABLET IN 2.6 ML OF WATER USING ORAL SYRINGE AND GIVE BY MOUTH 2 TIMES D
     Route: 048

REACTIONS (1)
  - Hospitalisation [Unknown]
